FAERS Safety Report 15605970 (Version 1)
Quarter: 2018Q4

REPORT INFORMATION
  Report Type: Report from Study
  Country: US (occurrence: US)
  Receive Date: 20181112
  Receipt Date: 20181112
  Transmission Date: 20190205
  Serious: Yes (Hospitalization)
  Sender: FDA-Public Use
  Company Number: US-TEVA-2018-US-974479

PATIENT
  Age: 46 Year
  Sex: Female
  Weight: 90 kg

DRUGS (54)
  1. CYTARABINE. [Suspect]
     Active Substance: CYTARABINE
     Indication: ACUTE MYELOID LEUKAEMIA
     Dosage: 200 MILLIGRAM DAILY; DAILY BY CONTINUOUS INFUSION
     Route: 041
     Dates: start: 20181002, end: 20181008
  2. ZOVIRAX [Concomitant]
     Active Substance: ACYCLOVIR
     Dates: start: 20180928
  3. OZURDEX [Concomitant]
     Active Substance: DEXAMETHASONE
     Dates: start: 20181007, end: 20181008
  4. PEPCID [Concomitant]
     Active Substance: FAMOTIDINE
     Dates: start: 20181002, end: 20181009
  5. HYDROXYUREA. [Concomitant]
     Active Substance: HYDROXYUREA
     Dates: start: 20180928, end: 20181001
  6. NYAMYC [Concomitant]
     Active Substance: NYSTATIN
     Dates: start: 20180930, end: 20181013
  7. MAGNESIUM [Concomitant]
     Active Substance: MAGNESIUM
     Dates: start: 20180929
  8. MAXIPINE [Concomitant]
     Dates: start: 20181007, end: 20181014
  9. PROTONIX [Concomitant]
     Active Substance: PANTOPRAZOLE SODIUM
     Dates: end: 20180926
  10. ATIVAN [Concomitant]
     Active Substance: LORAZEPAM
     Dates: start: 20180930, end: 20181012
  11. SENOKOT [Concomitant]
     Active Substance: SENNOSIDES
     Dates: start: 20180929, end: 20181002
  12. EMEND [Concomitant]
     Active Substance: APREPITANT
     Dates: start: 20181002, end: 20181002
  13. DIFLUCAN [Concomitant]
     Active Substance: FLUCONAZOLE
     Dates: start: 20180928, end: 20180930
  14. AVAPRO [Concomitant]
     Active Substance: IRBESARTAN
     Dates: end: 20180926
  15. ZYLOPRIM [Concomitant]
     Active Substance: ALLOPURINOL
     Dates: start: 20180927, end: 20180928
  16. OZURDEX [Concomitant]
     Active Substance: DEXAMETHASONE
     Dates: start: 20180926, end: 20180926
  17. MAALOX ANTACID [Concomitant]
     Active Substance: ALUMINUM HYDROXIDE\DIMETHICONE\MAGNESIUM HYDROXIDE
     Dates: start: 20180928
  18. TYLENOL [Concomitant]
     Active Substance: ACETAMINOPHEN
     Dates: start: 20181004, end: 20181013
  19. CLINDAMYCIN. [Concomitant]
     Active Substance: CLINDAMYCIN
     Dates: start: 20180912, end: 20180913
  20. ZOSYN [Concomitant]
     Active Substance: PIPERACILLIN SODIUM\TAZOBACTAM SODIUM
     Dates: start: 20181010, end: 20181010
  21. ZOSYN [Concomitant]
     Active Substance: PIPERACILLIN SODIUM\TAZOBACTAM SODIUM
     Dates: start: 20181014, end: 20181017
  22. LOMOTIL [Concomitant]
     Active Substance: ATROPINE SULFATE\DIPHENOXYLATE HYDROCHLORIDE
     Dates: start: 20181011, end: 20181015
  23. RYDAPT [Suspect]
     Active Substance: MIDOSTAURIN
     Indication: ACUTE MYELOID LEUKAEMIA
     Dosage: 100 MILLIGRAM DAILY;
     Route: 048
     Dates: start: 20181009, end: 20181011
  24. ADDERALL [Concomitant]
     Active Substance: AMPHETAMINE ASPARTATE\AMPHETAMINE SULFATE\DEXTROAMPHETAMINE SACCHARATE\DEXTROAMPHETAMINE SULFATE
     Dates: start: 20180927
  25. LOVENOX [Concomitant]
     Active Substance: ENOXAPARIN SODIUM
     Dates: start: 20180929, end: 20181001
  26. PEPCID [Concomitant]
     Active Substance: FAMOTIDINE
     Dates: start: 20180928, end: 20180928
  27. PEPCID [Concomitant]
     Active Substance: FAMOTIDINE
     Dates: start: 20180928, end: 20180929
  28. ZOFRAN [Concomitant]
     Active Substance: ONDANSETRON HYDROCHLORIDE
     Dates: start: 20181010, end: 20181016
  29. POTASSIUM [Concomitant]
     Active Substance: POTASSIUM
     Dates: start: 20180930, end: 20181014
  30. PROTONIX [Concomitant]
     Active Substance: PANTOPRAZOLE SODIUM
     Dates: start: 20181009, end: 20181016
  31. ZOSYN [Concomitant]
     Active Substance: PIPERACILLIN SODIUM\TAZOBACTAM SODIUM
     Dates: start: 20180926, end: 20180926
  32. PEPCID [Concomitant]
     Active Substance: FAMOTIDINE
     Dates: start: 20180927, end: 20180927
  33. PEPCID [Concomitant]
     Active Substance: FAMOTIDINE
     Dates: start: 20180930, end: 20181002
  34. MYCAMINE [Concomitant]
     Active Substance: MICAFUNGIN SODIUM
     Dates: start: 20180930
  35. PCA [Concomitant]
     Dates: start: 20181009, end: 20181022
  36. ZOFRAN [Concomitant]
     Active Substance: ONDANSETRON HYDROCHLORIDE
     Dates: start: 20180926
  37. ZOFRAN [Concomitant]
     Active Substance: ONDANSETRON HYDROCHLORIDE
     Dates: start: 20181002, end: 20181006
  38. LEVAQUIN [Concomitant]
     Active Substance: LEVOFLOXACIN
     Dates: start: 20181003, end: 20181007
  39. NORCO [Concomitant]
     Active Substance: ACETAMINOPHEN\HYDROCODONE BITARTRATE
     Dates: start: 20180928
  40. DURAMORPH [Concomitant]
     Active Substance: MORPHINE SULFATE
     Dates: start: 20180928, end: 20180929
  41. DURAMORPH [Concomitant]
     Active Substance: MORPHINE SULFATE
     Dates: start: 20181007, end: 20181009
  42. SENOKOT [Concomitant]
     Active Substance: SENNOSIDES
     Dates: start: 20181002, end: 20181016
  43. XYLOCAINE VISCOUS [Concomitant]
     Active Substance: LIDOCAINE HYDROCHLORIDE
     Dates: start: 20181002, end: 20181025
  44. CARAFATE [Concomitant]
     Active Substance: SUCRALFATE
     Dates: start: 20181009, end: 20181016
  45. BENTYL [Concomitant]
     Active Substance: DICYCLOMINE HYDROCHLORIDE
     Dates: start: 20181010
  46. URSODIOL. [Concomitant]
     Active Substance: URSODIOL
     Dates: start: 20181013
  47. LASIX [Concomitant]
     Active Substance: FUROSEMIDE
     Dates: start: 20181014, end: 20181014
  48. DAUNORUBICIN [Suspect]
     Active Substance: DAUNORUBICIN
     Indication: ACUTE MYELOID LEUKAEMIA
     Dosage: 120 MILLIGRAM DAILY; DAILY BY CONTINUOUS INFUSION
     Route: 041
     Dates: start: 20181002, end: 20181004
  49. ADDERALL [Concomitant]
     Active Substance: AMPHETAMINE ASPARTATE\AMPHETAMINE SULFATE\DEXTROAMPHETAMINE SACCHARATE\DEXTROAMPHETAMINE SULFATE
     Dates: start: 20180928, end: 20180928
  50. OZURDEX [Concomitant]
     Active Substance: DEXAMETHASONE
     Dates: start: 20181002, end: 20181004
  51. DURAMORPH [Concomitant]
     Active Substance: MORPHINE SULFATE
     Dates: start: 20180926
  52. TUMS [Concomitant]
     Active Substance: CALCIUM CARBONATE
     Dates: start: 20181003, end: 20181016
  53. PERIDEX [Concomitant]
     Active Substance: CHLORHEXIDINE GLUCONATE
     Dates: start: 20180927, end: 20180927
  54. IMODIUM A-D [Concomitant]
     Active Substance: LOPERAMIDE HYDROCHLORIDE
     Dates: start: 20181010

REACTIONS (1)
  - Hyperbilirubinaemia [Recovered/Resolved]

NARRATIVE: CASE EVENT DATE: 20181015
